FAERS Safety Report 14740080 (Version 5)
Quarter: 2018Q3

REPORT INFORMATION
  Report Type: Spontaneous
  Country: US (occurrence: US)
  Receive Date: 20180410
  Receipt Date: 20180823
  Transmission Date: 20181010
  Serious: No
  Sender: FDA-Public Use
  Company Number: PHEH2018US013536

PATIENT
  Sex: Male

DRUGS (3)
  1. AFINITOR [Suspect]
     Active Substance: EVEROLIMUS
     Indication: RENAL CANCER
     Route: 065
  2. LENVATINIB [Suspect]
     Active Substance: LENVATINIB
     Indication: RENAL CANCER
     Dosage: 18 MG, QD
     Route: 048
     Dates: start: 20180318
  3. LENVATINIB [Suspect]
     Active Substance: LENVATINIB
     Dosage: 14 MG, QD
     Route: 048

REACTIONS (9)
  - Skin exfoliation [Recovered/Resolved]
  - Skin fissures [Recovered/Resolved]
  - Movement disorder [Unknown]
  - Skin fragility [Not Recovered/Not Resolved]
  - Fatigue [Unknown]
  - Dermatitis acneiform [Unknown]
  - Thyroid hormones increased [Not Recovered/Not Resolved]
  - Acne [Not Recovered/Not Resolved]
  - Rash generalised [Recovered/Resolved]
